FAERS Safety Report 20940477 (Version 2)
Quarter: 2022Q2

REPORT INFORMATION
  Report Type: Spontaneous
  Country: US (occurrence: US)
  Receive Date: 20220609
  Receipt Date: 20220625
  Transmission Date: 20220721
  Serious: Yes (Life-Threatening, Hospitalization)
  Sender: FDA-Public Use
  Company Number: US-TEVA-2022-US-2043598

PATIENT
  Age: 42 Year
  Sex: Female

DRUGS (4)
  1. LIDOCAINE [Suspect]
     Active Substance: LIDOCAINE
     Indication: General anaesthesia
     Dosage: T2 BLOCK WITH 10 ML 0.5% ROPIVACAINE MIXED WITH 10 ML OF 1% LIDOCAINE
     Route: 065
  2. VANCOMYCIN [Suspect]
     Active Substance: VANCOMYCIN
     Indication: Product used for unknown indication
     Route: 041
  3. ROPIVACAINE [Suspect]
     Active Substance: ROPIVACAINE
     Indication: General anaesthesia
     Route: 065
  4. ROPIVACAINE [Suspect]
     Active Substance: ROPIVACAINE
     Dosage: T2 BLOCK WITH 10 ML 0.5% ROPIVACAINE MIXED WITH 10 ML OF 1% LIDOCAINE
     Route: 065

REACTIONS (2)
  - Urticaria [Recovered/Resolved]
  - Cardiac arrest [Recovered/Resolved]
